FAERS Safety Report 8601950-2 (Version None)
Quarter: 2012Q3

REPORT INFORMATION
  Report Type: 
  Country: None (occurrence: None)
  Receive Date: 20120817
  Receipt Date: 20120605
  Transmission Date: 20120928
  Serious: Yes (Other)
  Sender: FDA-Public Use
  Company Number: US-BRISTOL-MYERS SQUIBB COMPANY-16667271

PATIENT
  Sex: Female

DRUGS (7)
  1. METHOTREXATE [Suspect]
  2. PLAQUENIL [Concomitant]
  3. DIOVAN [Concomitant]
  4. FOLIC ACID [Concomitant]
  5. LORTAB [Concomitant]
     Indication: PAIN
  6. PREDNISONE TAB [Concomitant]
  7. SPRYCEL [Suspect]
     Indication: CHRONIC MYELOID LEUKAEMIA
     Dates: start: 20110301

REACTIONS (5)
  - MUSCULOSKELETAL PAIN [None]
  - FATIGUE [None]
  - WEIGHT INCREASED [None]
  - RASH PAPULAR [None]
  - MEMORY IMPAIRMENT [None]
